FAERS Safety Report 21048771 (Version 1)
Quarter: 2022Q3

REPORT INFORMATION
  Report Type: Spontaneous
  Country: US (occurrence: None)
  Receive Date: 20220706
  Receipt Date: 20220706
  Transmission Date: 20221027
  Serious: No
  Sender: FDA-Public Use
  Company Number: None

PATIENT

DRUGS (1)
  1. DIFICID [Suspect]
     Active Substance: FIDAXOMICIN
     Indication: Large intestine infection
     Dosage: OTHER QUANTITY : 2 PER DAY TOOK 14;?FREQUENCY : DAILY;?
     Route: 048
     Dates: start: 20220622, end: 20220629

REACTIONS (7)
  - Skin burning sensation [None]
  - Erythema [None]
  - Urticaria [None]
  - Adverse drug reaction [None]
  - Musculoskeletal chest pain [None]
  - Breast pain [None]
  - Muscle spasms [None]
